FAERS Safety Report 8545667-1 (Version None)
Quarter: 2012Q3

REPORT INFORMATION
  Report Type: 
  Country: None (occurrence: None)
  Receive Date: 20120727
  Receipt Date: 20120723
  Transmission Date: 20120928
  Serious: Yes (Hospitalization, Other)
  Sender: FDA-Public Use
  Company Number: US-009507513-1207USA010319

PATIENT

DRUGS (2)
  1. JANUVIA [Suspect]
     Dosage: 50 MG, QD
  2. CADUET [Suspect]
     Route: 048

REACTIONS (2)
  - STEVENS-JOHNSON SYNDROME [None]
  - OCULOMUCOCUTANEOUS SYNDROME [None]
